FAERS Safety Report 6465203-3 (Version None)
Quarter: 2009Q4

REPORT INFORMATION
  Report Type: 
  Country: None (occurrence: None)
  Receive Date: 20091201
  Receipt Date: 20091119
  Transmission Date: 20100525
  Serious: Yes (Other)
  Sender: FDA-Public Use
  Company Number: PHHY2009GB45535

PATIENT
  Sex: Male

DRUGS (13)
  1. CLOZARIL [Suspect]
     Indication: SCHIZOPHRENIA
     Dosage: UNK
     Route: 048
     Dates: start: 20010328, end: 20091020
  2. INTERFERON [Concomitant]
     Indication: HEPATITIS C
     Dosage: UNK
     Dates: start: 20091001
  3. RIBAVIRIN [Concomitant]
     Dosage: 600 MG, BID
     Dates: start: 20090917
  4. PEGASYS [Concomitant]
     Dosage: 180 MG/WEEK
     Dates: start: 20091001
  5. HALOPERIDOL [Concomitant]
     Indication: PSYCHOTIC DISORDER
     Dosage: 20 MG/DAY
     Dates: end: 20091023
  6. HALOPERIDOL [Concomitant]
     Dosage: 25 MG/DAY
     Dates: end: 20091023
  7. CITALOPRAM HYDROBROMIDE [Concomitant]
     Dosage: 30 MG, UNK
  8. DIAZEPAM [Concomitant]
     Indication: AGITATION
     Dosage: 20 MG, UNK
     Route: 048
  9. ASPIRIN [Concomitant]
  10. DIGOXIN [Concomitant]
     Indication: ATRIAL FIBRILLATION
     Dosage: 250 MCG
     Route: 048
  11. BISOPROLOL [Concomitant]
     Dosage: 2.5 MG, UNK
  12. OMEPRAZOLE [Concomitant]
     Dosage: 10 MG/DAY
     Route: 048
  13. CITALOPRAM HYDROBROMIDE [Concomitant]
     Indication: DEPRESSION
     Dosage: 30 MG DAILY
     Route: 048

REACTIONS (15)
  - AGGRESSION [None]
  - ALANINE AMINOTRANSFERASE INCREASED [None]
  - CHOLINERGIC SYNDROME [None]
  - DIARRHOEA [None]
  - DYSKINESIA [None]
  - HEPATIC CIRRHOSIS [None]
  - HEPATITIS C [None]
  - NAUSEA [None]
  - NEUTROPENIA [None]
  - PARKINSONISM [None]
  - PLATELET COUNT DECREASED [None]
  - PSYCHOTIC DISORDER [None]
  - SPLENOMEGALY [None]
  - VOMITING [None]
  - WHITE BLOOD CELL COUNT DECREASED [None]
